FAERS Safety Report 13985845 (Version 1)
Quarter: 2017Q3

REPORT INFORMATION
  Report Type: Spontaneous
  Country: US (occurrence: None)
  Receive Date: 20170919
  Receipt Date: 20170919
  Transmission Date: 20171128
  Serious: Yes (Other)
  Sender: FDA-Public Use
  Company Number: None

PATIENT
  Age: 31 Year
  Sex: Female

DRUGS (2)
  1. PAIN MEDICATION [Concomitant]
     Active Substance: UNSPECIFIED INGREDIENT
  2. STIMATE [Suspect]
     Active Substance: DESMOPRESSIN ACETATE
     Indication: VON WILLEBRAND^S DISEASE
     Dosage: 1 SPRAY  INTRANASAL
     Route: 045
     Dates: start: 20170917

REACTIONS (4)
  - Malaise [None]
  - Dysuria [None]
  - Diarrhoea [None]
  - Loss of consciousness [None]

NARRATIVE: CASE EVENT DATE: 20170918
